FAERS Safety Report 4575290-5 (Version None)
Quarter: 2005Q1

REPORT INFORMATION
  Report Type: 
  Country: None (occurrence: None)
  Receive Date: 20050127
  Receipt Date: 20050127
  Transmission Date: 20050727
  Serious: Yes (Life-Threatening, Hospitalization)
  Sender: FDA-Public Use
  Company Number: None

PATIENT
  Age: 73 Year
  Sex: Male
  Weight: 83.6 kg

DRUGS (27)
  1. CYTOXAN [Suspect]
     Indication: CHRONIC LYMPHOCYTIC LEUKAEMIA
     Dosage: 600MG/M2 IV Q 21 D X 6
     Route: 042
     Dates: start: 20040721
  2. CYTOXAN [Suspect]
     Indication: CHRONIC LYMPHOCYTIC LEUKAEMIA
     Dosage: 600MG/M2 IV Q 21 D X 6
     Route: 042
     Dates: start: 20040818
  3. CYTOXAN [Suspect]
     Indication: CHRONIC LYMPHOCYTIC LEUKAEMIA
     Dosage: 600MG/M2 IV Q 21 D X 6
     Route: 042
     Dates: start: 20040908
  4. CYTOXAN [Suspect]
     Indication: CHRONIC LYMPHOCYTIC LEUKAEMIA
     Dosage: 600MG/M2 IV Q 21 D X 6
     Route: 042
     Dates: start: 20041020
  5. CYTOXAN [Suspect]
     Indication: CHRONIC LYMPHOCYTIC LEUKAEMIA
     Dosage: 600MG/M2 IV Q 21 D X 6
     Route: 042
     Dates: start: 20041110
  6. CYTOXAN [Suspect]
     Indication: CHRONIC LYMPHOCYTIC LEUKAEMIA
     Dosage: 600MG/M2 IV Q 21 D X 6
     Route: 042
     Dates: start: 20041208
  7. RITUXAN [Suspect]
     Indication: CHRONIC LYMPHOCYTIC LEUKAEMIA
     Dosage: 375MG/M2 IV Q 21D X 6
     Route: 042
     Dates: start: 20040721, end: 20040723
  8. RITUXAN [Suspect]
     Indication: CHRONIC LYMPHOCYTIC LEUKAEMIA
     Dosage: 375MG/M2 IV Q 21D X 6
     Route: 042
     Dates: start: 20040818
  9. RITUXAN [Suspect]
     Indication: CHRONIC LYMPHOCYTIC LEUKAEMIA
     Dosage: 375MG/M2 IV Q 21D X 6
     Route: 042
     Dates: start: 20040908
  10. RITUXAN [Suspect]
     Indication: CHRONIC LYMPHOCYTIC LEUKAEMIA
     Dosage: 375MG/M2 IV Q 21D X 6
     Route: 042
     Dates: start: 20041020
  11. RITUXAN [Suspect]
     Indication: CHRONIC LYMPHOCYTIC LEUKAEMIA
     Dosage: 375MG/M2 IV Q 21D X 6
     Route: 042
     Dates: start: 20041110
  12. RITUXAN [Suspect]
     Indication: CHRONIC LYMPHOCYTIC LEUKAEMIA
     Dosage: 375MG/M2 IV Q 21D X 6
     Route: 042
     Dates: start: 20041208
  13. PENTOSTATIN [Suspect]
     Indication: CHRONIC LYMPHOCYTIC LEUKAEMIA
     Dosage: 4MG/M2 Q 21D X 6
     Dates: start: 20040721
  14. PENTOSTATIN [Suspect]
     Indication: CHRONIC LYMPHOCYTIC LEUKAEMIA
     Dosage: 4MG/M2 Q 21D X 6
     Dates: start: 20040818
  15. PENTOSTATIN [Suspect]
     Indication: CHRONIC LYMPHOCYTIC LEUKAEMIA
     Dosage: 4MG/M2 Q 21D X 6
     Dates: start: 20040908
  16. PENTOSTATIN [Suspect]
     Indication: CHRONIC LYMPHOCYTIC LEUKAEMIA
     Dosage: 4MG/M2 Q 21D X 6
     Dates: start: 20041020
  17. PENTOSTATIN [Suspect]
     Indication: CHRONIC LYMPHOCYTIC LEUKAEMIA
     Dosage: 4MG/M2 Q 21D X 6
     Dates: start: 20041110
  18. PENTOSTATIN [Suspect]
     Indication: CHRONIC LYMPHOCYTIC LEUKAEMIA
     Dosage: 4MG/M2 Q 21D X 6
     Dates: start: 20041208
  19. NEXIUM [Concomitant]
  20. FLONASE [Concomitant]
  21. ACYCLOVIR [Concomitant]
  22. XOPENEX [Concomitant]
  23. COMPAZINE [Concomitant]
  24. ALLEGRA [Concomitant]
  25. ENTEX ER [Concomitant]
  26. XANAX [Concomitant]
  27. PREDNISONE [Concomitant]

REACTIONS (5)
  - DYSPNOEA [None]
  - FEBRILE NEUTROPENIA [None]
  - OXYGEN SATURATION DECREASED [None]
  - PLATELET COUNT DECREASED [None]
  - WHITE BLOOD CELL COUNT DECREASED [None]
